FAERS Safety Report 17349848 (Version 1)
Quarter: 2020Q1

REPORT INFORMATION
  Report Type: Spontaneous
  Country: US (occurrence: US)
  Receive Date: 20200130
  Receipt Date: 20200130
  Transmission Date: 20200409
  Serious: No
  Sender: FDA-Public Use
  Company Number: US-AUROBINDO-AUR-APL-2019-057442

PATIENT
  Sex: Female

DRUGS (3)
  1. METAXALONE. [Concomitant]
     Active Substance: METAXALONE
     Indication: PRODUCT USED FOR UNKNOWN INDICATION
     Dosage: UNK
     Route: 065
  2. DULOXETINE DELAYED-RELEASE CAPSULES USP 20 MG [Suspect]
     Active Substance: DULOXETINE
     Indication: NEURALGIA
     Dosage: 1 DOSAGE FORM AT NIGHT (ONE CAPSULE NIGHTLY)
     Route: 065
  3. CLONAZEPAM. [Concomitant]
     Active Substance: CLONAZEPAM
     Indication: PRODUCT USED FOR UNKNOWN INDICATION
     Dosage: 0.5 MILLIGRAM
     Route: 065

REACTIONS (9)
  - Impaired driving ability [Not Recovered/Not Resolved]
  - Dizziness [Not Recovered/Not Resolved]
  - Influenza like illness [Recovered/Resolved]
  - Withdrawal syndrome [Unknown]
  - Wrong technique in product usage process [Unknown]
  - Off label use [Unknown]
  - Headache [Recovering/Resolving]
  - Therapy cessation [Recovered/Resolved]
  - Nausea [Recovering/Resolving]
